FAERS Safety Report 10424298 (Version 2)
Quarter: 2014Q3

REPORT INFORMATION
  Report Type: Report from Study
  Country: BR (occurrence: BR)
  Receive Date: 20140902
  Receipt Date: 20140929
  Transmission Date: 20150326
  Serious: Yes (Other)
  Sender: FDA-Public Use
  Company Number: PHHY2014BR110407

PATIENT
  Sex: Female

DRUGS (2)
  1. DIOVAN [Suspect]
     Active Substance: VALSARTAN
     Dosage: UNK UKN, UNK
  2. CAPTOPRIL. [Suspect]
     Active Substance: CAPTOPRIL
     Dosage: UNK UKN, UNK

REACTIONS (3)
  - Cerebrovascular accident [Unknown]
  - Blood pressure inadequately controlled [Unknown]
  - Blood pressure increased [Unknown]
